FAERS Safety Report 10248975 (Version 1)
Quarter: 2014Q2

REPORT INFORMATION
  Report Type: Spontaneous
  Country: US (occurrence: None)
  Receive Date: 20140522
  Receipt Date: 20140522
  Transmission Date: 20141212
  Serious: No
  Sender: FDA-Public Use
  Company Number: 1000064655

PATIENT
  Age: 82 Year
  Sex: Female

DRUGS (6)
  1. TUDORZA PRESSAIR [Suspect]
     Indication: ASTHMA
     Route: 055
     Dates: start: 201402
  2. TUDORZA PRESSAIR [Suspect]
     Indication: BRONCHITIS
     Route: 055
     Dates: start: 201402
  3. OMEPRAZOLE [Concomitant]
  4. FUROSEMIDE [Concomitant]
  5. NAPROXEN [Concomitant]
  6. VALIUM (DIAZEPAM) [Concomitant]

REACTIONS (3)
  - Headache [None]
  - Migraine [None]
  - Off label use [None]
